FAERS Safety Report 7433496-1 (Version None)
Quarter: 2011Q2

REPORT INFORMATION
  Report Type: 
  Country: None (occurrence: None)
  Receive Date: 20110422
  Receipt Date: 20110308
  Transmission Date: 20111010
  Serious: No
  Sender: FDA-Public Use
  Company Number: US-MUTUAL PHARMACEUTICAL COMPANY, INC.-CLCY20110024

PATIENT
  Sex: Female
  Weight: 56.75 kg

DRUGS (1)
  1. COLCRYS [Suspect]
     Route: 062
     Dates: start: 20110213, end: 20110306

REACTIONS (4)
  - LIP SWELLING [None]
  - TONGUE OEDEMA [None]
  - ACCIDENTAL EXPOSURE [None]
  - URTICARIA [None]
